FAERS Safety Report 7647482-X (Version None)
Quarter: 2011Q3

REPORT INFORMATION
  Report Type: 
  Country: None (occurrence: None)
  Receive Date: 20110801
  Receipt Date: 20110728
  Transmission Date: 20111222
  Serious: Yes (Hospitalization)
  Sender: FDA-Public Use
  Company Number: US-GLAXOSMITHKLINE-A0839105A

PATIENT
  Age: 37 Year
  Sex: Male
  Weight: 122.7 kg

DRUGS (6)
  1. CARDIZEM [Concomitant]
  2. LIPITOR [Concomitant]
  3. LISINOPRIL [Concomitant]
  4. CELEXA [Concomitant]
  5. AVANDIA [Suspect]
     Indication: DIABETES MELLITUS
     Dosage: 8MG PER DAY
     Route: 048
     Dates: start: 19990101
  6. KLONOPIN [Concomitant]

REACTIONS (2)
  - PRINZMETAL ANGINA [None]
  - CEREBROVASCULAR ACCIDENT [None]
